FAERS Safety Report 22118186 (Version 2)
Quarter: 2023Q1

REPORT INFORMATION
  Report Type: Spontaneous
  Country: US (occurrence: US)
  Receive Date: 20230321
  Receipt Date: 20230331
  Transmission Date: 20230417
  Serious: No
  Sender: FDA-Public Use
  Company Number: US-UNITED THERAPEUTICS-UNT-2023-005413

PATIENT
  Age: 64 Year
  Sex: Female

DRUGS (2)
  1. REMODULIN [Suspect]
     Active Substance: TREPROSTINIL
     Indication: Pulmonary arterial hypertension
     Dosage: 0.03065 ?G/KG, CONTINUING
     Route: 058
  2. REMODULIN [Suspect]
     Active Substance: TREPROSTINIL
     Dosage: UNK, CONTINUING
     Route: 058
     Dates: start: 202208

REACTIONS (6)
  - Infusion site pain [Not Recovered/Not Resolved]
  - Infusion site haemorrhage [Recovered/Resolved]
  - Infusion site erythema [Not Recovered/Not Resolved]
  - Oropharyngeal pain [Recovered/Resolved]
  - Sinus pain [Recovered/Resolved]
  - Device difficult to use [Unknown]

NARRATIVE: CASE EVENT DATE: 20230201
